FAERS Safety Report 7415429-7 (Version None)
Quarter: 2011Q2

REPORT INFORMATION
  Report Type: 
  Country: None (occurrence: None)
  Receive Date: 20110406
  Receipt Date: 20110330
  Transmission Date: 20111010
  Serious: No
  Sender: FDA-Public Use
  Company Number: 2011-00146

PATIENT

DRUGS (1)
  1. ZICAM COLD REMEDY NASAL GEL [Suspect]

REACTIONS (1)
  - AGEUSIA [None]
